FAERS Safety Report 9878724 (Version 2)
Quarter: 2014Q1

REPORT INFORMATION
  Report Type: Spontaneous
  Country: US (occurrence: US)
  Receive Date: 20140206
  Receipt Date: 20140206
  Transmission Date: 20141002
  Serious: No
  Sender: FDA-Public Use
  Company Number: US-ALLERGAN-1309704US

PATIENT
  Age: 44 Year
  Sex: Female

DRUGS (8)
  1. BOTOX COSMETIC [Suspect]
     Indication: SKIN WRINKLING
     Dosage: 11 UNITS, SINGLE
     Route: 030
     Dates: start: 20130611, end: 20130611
  2. BOTOX COSMETIC [Suspect]
     Indication: SKIN WRINKLING
     Dosage: 24 UNITS, SINGLE
     Route: 030
     Dates: start: 20130528, end: 20130528
  3. EXCEDRIN MIGRAINE [Concomitant]
     Indication: HEADACHE
     Dosage: UNK UNK, PRN
     Route: 048
  4. BIRTH CONTROL PILLS [Concomitant]
     Indication: CONTRACEPTION
     Dosage: UNK
  5. HERBAL SUPPLEMENTS NOS [Concomitant]
     Indication: SUPPLEMENTATION THERAPY
     Dosage: UNK
  6. PROBIOTICS [Concomitant]
     Indication: SUPPLEMENTATION THERAPY
     Dosage: UNK
  7. FIBER [Concomitant]
     Indication: SUPPLEMENTATION THERAPY
  8. MVI [Concomitant]
     Indication: SUPPLEMENTATION THERAPY
     Dosage: UNK

REACTIONS (4)
  - Skin wrinkling [Unknown]
  - Therapeutic response unexpected [Unknown]
  - Therapeutic response decreased [Unknown]
  - Drug ineffective [Unknown]
